FAERS Safety Report 5591300-0 (Version None)
Quarter: 2008Q1

REPORT INFORMATION
  Report Type: 
  Country: None (occurrence: None)
  Receive Date: 20080110
  Receipt Date: 20080110
  Transmission Date: 20080703
  Serious: No
  Sender: FDA-Public Use
  Company Number: None

PATIENT
  Age: 41 Year
  Sex: Female
  Weight: 68.0396 kg

DRUGS (2)
  1. FOLLISTIM AQ [Suspect]
     Indication: INFERTILITY
     Dosage: 350 IU  DAILY  SQ
     Route: 058
     Dates: start: 20071123, end: 20071205
  2. MENOPUR [Suspect]
     Dosage: 751 U  DAILY  IM
     Route: 030

REACTIONS (6)
  - ABDOMINAL DISTENSION [None]
  - ANXIETY [None]
  - DYSPNOEA [None]
  - EMOTIONAL DISTRESS [None]
  - FEAR [None]
  - SINUS CONGESTION [None]
